FAERS Safety Report 8488831-2 (Version None)
Quarter: 2012Q2

REPORT INFORMATION
  Report Type: 
  Country: None (occurrence: None)
  Receive Date: 20120626
  Receipt Date: 20120619
  Transmission Date: 20120825
  Serious: Yes (Hospitalization)
  Sender: FDA-Public Use
  Company Number: WAES 1206USA03067

PATIENT
  Age: 77 Year
  Sex: Female

DRUGS (3)
  1. ISOSORBIDE MONONITRATE [Concomitant]
  2. PRINIVIL [Suspect]
     Indication: ESSENTIAL HYPERTENSION
     Dosage: 5 MG/DAILY
     Route: 048
     Dates: start: 20031021, end: 20120110
  3. OXYBUTYNIN [Concomitant]

REACTIONS (5)
  - DYSPEPSIA [None]
  - TUBULOINTERSTITIAL NEPHRITIS [None]
  - URINARY TRACT INFECTION [None]
  - RENAL FAILURE ACUTE [None]
  - HYPERKALAEMIA [None]
